FAERS Safety Report 9200501 (Version 1)
Quarter: 2013Q1

REPORT INFORMATION
  Report Type: Spontaneous
  Country: US (occurrence: US)
  Receive Date: 20130329
  Receipt Date: 20130329
  Transmission Date: 20140127
  Serious: Yes (Hospitalization, Other)
  Sender: FDA-Public Use
  Company Number: US-ABBOTT-13P-163-1067522-00

PATIENT
  Age: 26 Year
  Sex: Male
  Weight: 45.4 kg

DRUGS (7)
  1. HUMIRA [Suspect]
     Indication: CROHN^S DISEASE
     Dosage: 1 PEN OF STARTER DOSE
     Route: 058
     Dates: start: 20130312
  2. HUMIRA [Suspect]
     Indication: COLITIS ULCERATIVE
     Dosage: 2 PENS OF STARTER DOSE
     Dates: start: 20130312
  3. TRAZODONE [Concomitant]
     Indication: PRODUCT USED FOR UNKNOWN INDICATION
  4. ABILIFY [Concomitant]
     Indication: PRODUCT USED FOR UNKNOWN INDICATION
  5. IRON [Concomitant]
     Indication: PRODUCT USED FOR UNKNOWN INDICATION
  6. PAXIL [Concomitant]
     Indication: PRODUCT USED FOR UNKNOWN INDICATION
  7. PRILOSEC [Concomitant]
     Indication: PRODUCT USED FOR UNKNOWN INDICATION

REACTIONS (2)
  - Foreign body [Unknown]
  - Cerebrovascular accident [Not Recovered/Not Resolved]
